FAERS Safety Report 17332116 (Version 2)
Quarter: 2020Q3

REPORT INFORMATION
  Report Type: Spontaneous
  Country: FR (occurrence: FR)
  Receive Date: 20200127
  Receipt Date: 20200826
  Transmission Date: 20201102
  Serious: Yes (Hospitalization, Other)
  Sender: FDA-Public Use
  Company Number: FR-SUN PHARMACEUTICAL INDUSTRIES LTD-2020RR-234596

PATIENT
  Age: 28 Year
  Sex: Female
  Weight: 44 kg

DRUGS (5)
  1. TRAMADOL. [Suspect]
     Active Substance: TRAMADOL
     Indication: POSTOPERATIVE ANALGESIA
     Dosage: 800 MILLIGRAM, DAILY
     Route: 048
     Dates: start: 2013, end: 201910
  2. SERESTA 50 MG, COMPRIME SECABLE [Suspect]
     Active Substance: OXAZEPAM
     Indication: ANXIETY
     Dosage: 6 DOSAGE FORM, DAILY
     Route: 048
     Dates: start: 2006
  3. VALIUM [Suspect]
     Active Substance: DIAZEPAM
     Indication: ANXIETY
     Dosage: 80 MILLIGRAM, DAILY
     Route: 048
     Dates: start: 2006
  4. METHADONE (CHLORHYDRATE DE) [Concomitant]
     Active Substance: METHADONE HYDROCHLORIDE
     Indication: DRUG DEPENDENCE
     Dosage: METHADONE SIROP 40MG/15ML PAR JOUR
     Route: 048
     Dates: start: 201910
  5. IMOVANE [Suspect]
     Active Substance: ZOPICLONE
     Indication: ANXIETY
     Dosage: 8 DOSAGE FORM, DAILY
     Route: 048
     Dates: start: 2006

REACTIONS (2)
  - Drug dependence [Recovering/Resolving]
  - Drug withdrawal syndrome [Recovering/Resolving]

NARRATIVE: CASE EVENT DATE: 2006
